FAERS Safety Report 13239238 (Version 1)
Quarter: 2017Q1

REPORT INFORMATION
  Report Type: Spontaneous
  Country: US (occurrence: US)
  Receive Date: 20170216
  Receipt Date: 20170216
  Transmission Date: 20170428
  Serious: No
  Sender: FDA-Public Use
  Company Number: US-BAYER-2017-030992

PATIENT
  Sex: Male
  Weight: 78 kg

DRUGS (1)
  1. ALEVE [Suspect]
     Active Substance: NAPROXEN SODIUM
     Dosage: 2 DF, PRN
     Route: 048

REACTIONS (3)
  - Expired product administered [None]
  - Product use issue [None]
  - Somnolence [Recovered/Resolved]

NARRATIVE: CASE EVENT DATE: 20170214
